FAERS Safety Report 5976956-2 (Version None)
Quarter: 2008Q4

REPORT INFORMATION
  Report Type: 
  Country: None (occurrence: None)
  Receive Date: 20081125
  Receipt Date: 20081114
  Transmission Date: 20090506
  Serious: Yes (Hospitalization, Other)
  Sender: FDA-Public Use
  Company Number: 2008SP023313

PATIENT
  Age: 3 Month
  Sex: Male

DRUGS (1)
  1. BETAMATHASONE DIPROPIONATE [Suspect]
     Indication: ACNE
     Dosage: ; TOP
     Route: 061

REACTIONS (4)
  - CHILDHOOD PSYCHOSIS [None]
  - GROWTH RETARDATION [None]
  - HYPOTONIA [None]
  - NEURODEVELOPMENTAL DISORDER [None]
